FAERS Safety Report 7317931-5 (Version None)
Quarter: 2011Q1

REPORT INFORMATION
  Report Type: 
  Country: None (occurrence: None)
  Receive Date: 20110226
  Receipt Date: 20101227
  Transmission Date: 20110831
  Serious: No
  Sender: FDA-Public Use
  Company Number: US-ALLERGAN-1016926US

PATIENT
  Age: 62 Year
  Sex: Female

DRUGS (2)
  1. BOTOX COSMETIC [Suspect]
     Dosage: UNK
     Dates: start: 20101201, end: 20101201
  2. BOTOX COSMETIC [Suspect]
     Indication: SKIN WRINKLING
     Dosage: 12 UNITS, SINGLE
     Dates: start: 20100929, end: 20100929

REACTIONS (2)
  - INJECTION SITE PAIN [None]
  - THERAPEUTIC RESPONSE DECREASED [None]
